FAERS Safety Report 9838202 (Version 1)
Quarter: 2013Q4

REPORT INFORMATION
  Report Type: Spontaneous
  Country: US (occurrence: None)
  Receive Date: 20131205
  Receipt Date: 20131205
  Transmission Date: 20140711
  Serious: Yes (Other)
  Sender: FDA-Public Use
  Company Number: 163-POMAL-13092821

PATIENT
  Age: 48 Year
  Sex: Male

DRUGS (5)
  1. POMALYST(POMALIDOMIDE) (4 MILLIGRAM, CAPSULES) [Suspect]
     Indication: PLASMA CELL MYELOMA
     Dosage: 4 MG, 21 IN 21 D, PO
     Route: 048
     Dates: start: 20130306
  2. CYTOXAN(CYCLOPHOSPHAMIDE) [Concomitant]
  3. VELCADE(BORTEZOMIB) [Concomitant]
  4. DEXAMETHASONE(DEXAMETHASONE) [Concomitant]
  5. PROCRIT(ERYTHROPOIETIN) [Concomitant]

REACTIONS (5)
  - Joint swelling [None]
  - Fatigue [None]
  - Haemoglobin decreased [None]
  - Insomnia [None]
  - Red blood cell count abnormal [None]
